FAERS Safety Report 14723272 (Version 1)
Quarter: 2018Q2

REPORT INFORMATION
  Report Type: Spontaneous
  Country: US (occurrence: US)
  Receive Date: 20180405
  Receipt Date: 20180405
  Transmission Date: 20180711
  Serious: No
  Sender: FDA-Public Use
  Company Number: PHEH2018US012232

PATIENT

DRUGS (2)
  1. RECLAST [Suspect]
     Active Substance: ZOLEDRONIC ACID
     Indication: PRODUCT USED FOR UNKNOWN INDICATION
     Route: 041
  2. RECLAST [Suspect]
     Active Substance: ZOLEDRONIC ACID
     Dosage: 10 ML, UNK
     Route: 058

REACTIONS (1)
  - Incorrect route of drug administration [Unknown]
